FAERS Safety Report 5313397-5 (Version None)
Quarter: 2007Q2

REPORT INFORMATION
  Report Type: 
  Country: None (occurrence: None)
  Receive Date: 20070427
  Receipt Date: 20070427
  Transmission Date: 20071010
  Serious: Yes (Hospitalization)
  Sender: FDA-Public Use
  Company Number: None

PATIENT
  Sex: Female
  Weight: 78.9 kg

DRUGS (1)
  1. TEMOZOLOMIDE [Suspect]
     Dosage: 1900 MG

REACTIONS (3)
  - ARRHYTHMIA [None]
  - DYSPNOEA EXERTIONAL [None]
  - PANCYTOPENIA [None]
